FAERS Safety Report 9333140 (Version 1)
Quarter: 2013Q2

REPORT INFORMATION
  Report Type: Spontaneous
  Country: US (occurrence: None)
  Receive Date: 20130604
  Receipt Date: 20130604
  Transmission Date: 20140414
  Serious: Yes (Death, Other)
  Sender: FDA-Public Use
  Company Number: B0896172A

PATIENT
  Sex: 0

DRUGS (5)
  1. MELPHALAN [Suspect]
     Indication: AMYLOIDOSIS
  2. LENALIDOMIDE [Suspect]
     Indication: AMYLOIDOSIS
  3. DEXAMETHASONE [Suspect]
     Indication: AMYLOIDOSIS
  4. ASPIRIN [Concomitant]
  5. PROTON PUMP INHIBITORS [Concomitant]

REACTIONS (6)
  - Toxicity to various agents [None]
  - Cardiac failure [None]
  - Fatigue [None]
  - Blood alkaline phosphatase increased [None]
  - Neutropenia [None]
  - Bone marrow failure [None]
